FAERS Safety Report 19509837 (Version 2)
Quarter: 2021Q3

REPORT INFORMATION
  Report Type: Spontaneous
  Country: JP (occurrence: JP)
  Receive Date: 20210709
  Receipt Date: 20210901
  Transmission Date: 20211014
  Serious: Yes (Other)
  Sender: FDA-Public Use
  Company Number: JP-NOVOPROD-824834

PATIENT
  Age: 84 Year
  Sex: Female
  Weight: 68.5 kg

DRUGS (11)
  1. CELECOXIB. [Concomitant]
     Active Substance: CELECOXIB
     Dosage: 200?0?200MG AFTER MEAL
     Route: 048
     Dates: start: 20210401
  2. OZEMPIC [Suspect]
     Active Substance: SEMAGLUTIDE
     Indication: TYPE 2 DIABETES MELLITUS
     Dosage: 0.25 MG, QW
     Route: 058
     Dates: start: 20210606, end: 20210820
  3. JARDIANCE [Concomitant]
     Active Substance: EMPAGLIFLOZIN
     Indication: TYPE 2 DIABETES MELLITUS
     Dosage: 10 MG, QD
     Route: 048
     Dates: start: 20210401
  4. FEBURIC [Concomitant]
     Active Substance: FEBUXOSTAT
     Dosage: 10 MG, QD (AFTER BREAKFAST)
     Route: 048
     Dates: start: 20210401
  5. NIFEDIPINE. [Concomitant]
     Active Substance: NIFEDIPINE
     Dosage: 40 MG
     Route: 048
  6. KAYEXALATE [Concomitant]
     Active Substance: SODIUM POLYSTYRENE SULFONATE
     Dosage: 2?0?2DF AFTER MEAL
     Route: 048
     Dates: start: 20210401
  7. ETHYL ICOSAPENTATE [Concomitant]
     Active Substance: ICOSAPENT ETHYL
     Dosage: 900MG AFTER BREAKFAST
     Route: 048
     Dates: start: 20210401
  8. CARVEDILOL. [Concomitant]
     Active Substance: CARVEDILOL
     Dosage: 20?0?20MG AFTER MEAL
     Route: 048
     Dates: start: 20210401
  9. TRESIBA [Concomitant]
     Active Substance: INSULIN DEGLUDEC
     Indication: TYPE 2 DIABETES MELLITUS
     Dosage: 28 IU, QD
     Route: 058
     Dates: start: 20210401
  10. ROZEREM [Concomitant]
     Active Substance: RAMELTEON
     Dosage: 8MG BEFORE BEDTIME
     Route: 048
     Dates: start: 20210401
  11. SENNOSIDES. [Concomitant]
     Active Substance: SENNOSIDES
     Dosage: 12MG BEFORE BEDTIME
     Route: 048
     Dates: start: 20210401

REACTIONS (1)
  - Liver function test increased [Recovered/Resolved]

NARRATIVE: CASE EVENT DATE: 20210608
